FAERS Safety Report 7164427-X (Version None)
Quarter: 2010Q4

REPORT INFORMATION
  Report Type: 
  Country: None (occurrence: None)
  Receive Date: 20101215
  Receipt Date: 20101208
  Transmission Date: 20110411
  Serious: Yes (Other)
  Sender: FDA-Public Use
  Company Number: DE-TEVA-259181GER

PATIENT
  Age: 11 Year
  Sex: Female

DRUGS (3)
  1. INDOMETACIN (INDOMET-RATIOPHARM) [Suspect]
     Indication: POLYARTHRITIS
     Route: 048
  2. ETANERCEPT [Interacting]
     Indication: POLYARTHRITIS
  3. METHOTREXATE [Concomitant]
     Indication: POLYARTHRITIS

REACTIONS (5)
  - AGGRESSION [None]
  - ANXIETY [None]
  - DRUG INTERACTION [None]
  - PSYCHOTIC BEHAVIOUR [None]
  - SCHIZOPHRENIA [None]
